FAERS Safety Report 7202333-2 (Version None)
Quarter: 2010Q4

REPORT INFORMATION
  Report Type: 
  Country: None (occurrence: None)
  Receive Date: 20101229
  Receipt Date: 20101220
  Transmission Date: 20110411
  Serious: Yes (Other)
  Sender: FDA-Public Use
  Company Number: CA-JNJFOC-20101207255

PATIENT
  Sex: Female
  Weight: 42.1 kg

DRUGS (22)
  1. REMICADE [Suspect]
     Indication: CROHN'S DISEASE
     Route: 042
  2. PREDNISONE [Concomitant]
  3. PANTOLOC [Concomitant]
  4. MAXERAN [Concomitant]
  5. DOMPERIDONE [Concomitant]
  6. ACYCLOVIR SODIUM [Concomitant]
  7. FLUVOXAMINE MALEATE [Concomitant]
  8. TRAZODONE [Concomitant]
  9. ATIVAN [Concomitant]
  10. IMURAN [Concomitant]
  11. FOLIC ACID [Concomitant]
  12. ALENDRONATE SODIUM [Concomitant]
  13. SEROQUEL [Concomitant]
  14. NEURONTIN [Concomitant]
  15. VENLAFAXINE [Concomitant]
  16. NOVASEN [Concomitant]
  17. MULTI-VITAMINS [Concomitant]
  18. MAXALT [Concomitant]
  19. VITAMIN B-12 [Concomitant]
  20. FENTANYL-100 [Concomitant]
  21. TRIAVIL [Concomitant]
  22. STATEX [Concomitant]

REACTIONS (4)
  - CROHN'S DISEASE [None]
  - MUSCULOSKELETAL STIFFNESS [None]
  - PAIN [None]
  - ROAD TRAFFIC ACCIDENT [None]
